FAERS Safety Report 9830898 (Version 2)
Quarter: 2014Q1

REPORT INFORMATION
  Report Type: Report from Study
  Country: US (occurrence: US)
  Receive Date: 20140120
  Receipt Date: 20140124
  Transmission Date: 20141002
  Serious: Yes (Hospitalization)
  Sender: FDA-Public Use
  Company Number: US-ABBVIE-14P-163-1189150-00

PATIENT
  Age: 63 Year
  Sex: Female

DRUGS (4)
  1. HUMIRA [Suspect]
     Indication: CROHN^S DISEASE
     Route: 058
     Dates: start: 201310, end: 201310
  2. HUMIRA [Suspect]
     Dosage: TWO WEEKS AFTER INITIAL DOSE
     Dates: start: 201310, end: 201310
  3. HUMIRA [Suspect]
     Dosage: STARTED FOUR WEEKS AFTER INITIAL DOSE
     Dates: start: 201310
  4. AZATHIOPRINE [Concomitant]
     Indication: CROHN^S DISEASE

REACTIONS (12)
  - Electrolyte imbalance [Unknown]
  - Injection site injury [Unknown]
  - Colonic fistula [Recovering/Resolving]
  - Incorrect dose administered [Unknown]
  - Injection site haemorrhage [Unknown]
  - Hypokalaemia [Recovered/Resolved]
  - Nausea [Recovered/Resolved]
  - Vomiting [Recovered/Resolved]
  - Colonic fistula [Not Recovered/Not Resolved]
  - Drug effect incomplete [Not Recovered/Not Resolved]
  - Stress [Unknown]
  - Crohn^s disease [Recovered/Resolved]
